FAERS Safety Report 9377032 (Version 1)
Quarter: 2013Q2

REPORT INFORMATION
  Report Type: Spontaneous
  Country: US (occurrence: None)
  Receive Date: 20130628
  Receipt Date: 20130628
  Transmission Date: 20140414
  Serious: No
  Sender: FDA-Public Use
  Company Number: None

PATIENT
  Sex: 0

DRUGS (1)
  1. LACTATED RINGERS [Suspect]

REACTIONS (14)
  - Paraesthesia [None]
  - Walking aid user [None]
  - Multiple sclerosis [None]
  - Surgery [None]
  - Urinary incontinence [None]
  - Hypoaesthesia [None]
  - Pain [None]
  - Arthralgia [None]
  - Blood pressure decreased [None]
  - Muscular weakness [None]
  - Tremor [None]
  - Faecal incontinence [None]
  - Decreased appetite [None]
  - Weight decreased [None]
